FAERS Safety Report 6997735-3 (Version None)
Quarter: 2010Q3

REPORT INFORMATION
  Report Type: 
  Country: None (occurrence: None)
  Receive Date: 20100919
  Receipt Date: 20100908
  Transmission Date: 20110219
  Serious: Yes (Other)
  Sender: FDA-Public Use
  Company Number: PHHY2010FR42860

PATIENT
  Sex: Female
  Weight: 75 kg

DRUGS (6)
  1. ACLASTA [Suspect]
     Indication: OSTEOPOROSIS
  2. ESIDRIX [Concomitant]
  3. METFORMIN HCL [Concomitant]
  4. MOPRAL [Concomitant]
  5. ALPRAZOLAM [Concomitant]
  6. OSTRAM [Concomitant]

REACTIONS (2)
  - ARTHRALGIA [None]
  - OEDEMATOUS PANCREATITIS [None]
